FAERS Safety Report 9676138 (Version 3)
Quarter: 2013Q4

REPORT INFORMATION
  Report Type: Spontaneous
  Country: JP (occurrence: JP)
  Receive Date: 20131107
  Receipt Date: 20131120
  Transmission Date: 20140711
  Serious: Yes (Hospitalization, Other)
  Sender: FDA-Public Use
  Company Number: JP-ABBVIE-11P-087-0706779-00

PATIENT
  Age: 56 Year
  Sex: Male
  Weight: 63.2 kg

DRUGS (13)
  1. HUMIRA 40 MG/ 0.8 ML PRE-FILLED SYRINGE [Suspect]
     Indication: RHEUMATOID ARTHRITIS
     Route: 058
     Dates: start: 20100902, end: 20110202
  2. AMLODIPINE BESILATE [Concomitant]
     Indication: HYPERTENSION
     Route: 048
  3. VITAMIN B COMPLEX [Concomitant]
     Indication: NEUROPATHY PERIPHERAL
     Route: 048
  4. AROTINOLOL HYDROCHLORIDE [Concomitant]
     Indication: HYPERTENSION
     Route: 048
  5. LANSOPRAZOLE [Concomitant]
     Indication: GASTROOESOPHAGEAL REFLUX DISEASE
     Route: 048
  6. DOXAZOSIN MESILATE [Concomitant]
     Indication: HYPERTENSION
     Route: 048
  7. CANDESARTAN CILEXETIL [Concomitant]
     Indication: HYPERTENSION
     Route: 048
  8. TACROLIMUS HYDRATE [Concomitant]
     Indication: RHEUMATOID ARTHRITIS
     Route: 048
     Dates: start: 20091109, end: 20110222
  9. NIFEDIPINE [Concomitant]
     Indication: HYPERTENSION
     Route: 048
  10. CLONIDINE HYDROCHLORIDE [Concomitant]
     Indication: HYPERTENSION
     Route: 048
  11. ALFACALCIDOL [Concomitant]
     Indication: RENAL OSTEODYSTROPHY
     Route: 048
  12. CHLORPHENIRAMINE MALEATE [Concomitant]
     Indication: PRURITUS
     Route: 048
  13. FUROSEMIDE [Concomitant]
     Indication: OEDEMA
     Route: 048

REACTIONS (14)
  - Lupus-like syndrome [Recovered/Resolved]
  - Pericardial effusion [Recovered/Resolved]
  - Bronchitis [Recovered/Resolved]
  - Bronchitis [Recovered/Resolved]
  - Pyrexia [Unknown]
  - Infection [Unknown]
  - Malaise [Unknown]
  - Atrial fibrillation [Recovered/Resolved]
  - Hypocomplementaemia [Recovered/Resolved]
  - DNA antibody positive [Recovered/Resolved]
  - Antinuclear antibody increased [Recovered/Resolved]
  - Cardiomegaly [Unknown]
  - Pyrexia [Unknown]
  - Pericarditis [Recovered/Resolved]
